FAERS Safety Report 4627811-1 (Version None)
Quarter: 2005Q2

REPORT INFORMATION
  Report Type: 
  Country: None (occurrence: None)
  Receive Date: 20050404
  Receipt Date: 20050404
  Transmission Date: 20051028
  Serious: Yes (Disabling)
  Sender: FDA-Public Use
  Company Number: None

PATIENT
  Age: 33 Year
  Sex: Male
  Weight: 120.2032 kg

DRUGS (1)
  1. COLD EEZE [Suspect]
     Indication: NASOPHARYNGITIS
     Dosage: USED TWICE
     Dates: start: 20041201

REACTIONS (3)
  - ANOSMIA [None]
  - DYSGEUSIA [None]
  - NASAL DISCOMFORT [None]
